FAERS Safety Report 21010781 (Version 1)
Quarter: 2022Q2

REPORT INFORMATION
  Report Type: Spontaneous
  Country: US (occurrence: None)
  Receive Date: 20220624
  Receipt Date: 20220624
  Transmission Date: 20220721
  Serious: Yes (Life-Threatening, Hospitalization, Other)
  Sender: FDA-Public Use
  Company Number: None

PATIENT
  Age: 57 Year
  Sex: Female

DRUGS (2)
  1. HUMIRA [Suspect]
     Active Substance: ADALIMUMAB
     Indication: Product used for unknown indication
     Dosage: 40MG OTHER SUBCUTANEOUS
     Route: 058
     Dates: start: 202008, end: 202105
  2. COVID-19 VACCINE NOS [Suspect]
     Active Substance: COVID-19 VACCINE NOS

REACTIONS (9)
  - Headache [None]
  - Hypertension [None]
  - Vision blurred [None]
  - Visual impairment [None]
  - Pulmonary mass [None]
  - Hypophagia [None]
  - Gait disturbance [None]
  - Hypokinesia [None]
  - Breakthrough COVID-19 [None]

NARRATIVE: CASE EVENT DATE: 20220501
